FAERS Safety Report 9908476 (Version 1)
Quarter: 2014Q1

REPORT INFORMATION
  Report Type: Spontaneous
  Country: US (occurrence: None)
  Receive Date: 20140214
  Receipt Date: 20140214
  Transmission Date: 20141002
  Serious: Yes (Hospitalization)
  Sender: FDA-Public Use
  Company Number: None

PATIENT
  Age: 77 Year
  Sex: Male
  Weight: 94.2 kg

DRUGS (16)
  1. LANTUS [Suspect]
     Indication: DIABETES MELLITUS
     Dosage: CHRONIC
     Route: 048
  2. NOVOLIN [Suspect]
     Indication: DIABETES MELLITUS
     Dosage: CHRONIC
  3. PRIMIDONE [Concomitant]
  4. ZOCOR [Concomitant]
  5. ATENOLOL [Concomitant]
  6. LASIX [Concomitant]
  7. ALBUTEROL [Concomitant]
  8. AMBIEN [Concomitant]
  9. FLOMAX [Concomitant]
  10. FERROUS SULFATE [Concomitant]
  11. OMEPRAZOLE [Concomitant]
  12. LOSARTAN [Concomitant]
  13. COUMADIN [Concomitant]
  14. ASA [Concomitant]
  15. COMBIVENT [Concomitant]
  16. SYNTHROID [Concomitant]

REACTIONS (6)
  - Syncope [None]
  - Hypoglycaemia [None]
  - Nausea [None]
  - Embolic stroke [None]
  - Anticoagulation drug level below therapeutic [None]
  - Hypophagia [None]
